FAERS Safety Report 14684360 (Version 2)
Quarter: 2018Q2

REPORT INFORMATION
  Report Type: Spontaneous
  Country: US (occurrence: US)
  Receive Date: 20180327
  Receipt Date: 20180403
  Transmission Date: 20180711
  Serious: No
  Sender: FDA-Public Use
  Company Number: US-TEVA-2018-US-873335

PATIENT
  Sex: Male

DRUGS (1)
  1. CEFALEXIN [Suspect]
     Active Substance: CEPHALEXIN
     Route: 065

REACTIONS (5)
  - Sinusitis [Unknown]
  - Musculoskeletal stiffness [Unknown]
  - Ear pain [Unknown]
  - Headache [Unknown]
  - Nightmare [Unknown]
